FAERS Safety Report 9653208 (Version 1)
Quarter: 2013Q4

REPORT INFORMATION
  Report Type: Spontaneous
  Country: CN (occurrence: CN)
  Receive Date: 20131029
  Receipt Date: 20131029
  Transmission Date: 20140711
  Serious: Yes (Other)
  Sender: FDA-Public Use
  Company Number: CN-GLAXOSMITHKLINE-B0928664A

PATIENT
  Age: 1 Year
  Sex: Female
  Weight: 13 kg

DRUGS (1)
  1. LAMICTAL [Suspect]
     Indication: EPILEPSY
     Dosage: 25MG PER DAY
     Route: 048
     Dates: start: 20120718, end: 20120801

REACTIONS (6)
  - Convulsion [Recovering/Resolving]
  - Rash [Recovering/Resolving]
  - Generalised oedema [Recovering/Resolving]
  - Pyrexia [Recovering/Resolving]
  - Somnolence [Unknown]
  - Breath sounds abnormal [Unknown]
